FAERS Safety Report 25768834 (Version 1)
Quarter: 2025Q3

REPORT INFORMATION
  Report Type: Report from Study
  Country: US (occurrence: US)
  Receive Date: 20250905
  Receipt Date: 20250905
  Transmission Date: 20251020
  Serious: No
  Sender: Karo Pharma
  Company Number: US-Karo Pharma-2183937

PATIENT
  Age: 53 Year
  Sex: Male

DRUGS (1)
  1. LAMISIL [Suspect]
     Active Substance: TERBINAFINE HYDROCHLORIDE
     Indication: Product used for unknown indication

REACTIONS (2)
  - Product physical consistency issue [Unknown]
  - Drug ineffective [Unknown]
